FAERS Safety Report 8041470-X (Version None)
Quarter: 2012Q1

REPORT INFORMATION
  Report Type: 
  Country: None (occurrence: None)
  Receive Date: 20120112
  Receipt Date: 20120106
  Transmission Date: 20120608
  Serious: Yes (Other)
  Sender: FDA-Public Use
  Company Number: GB-PFIZER INC-2011276447

PATIENT
  Age: 74 Year
  Sex: Male

DRUGS (6)
  1. FUROSEMIDE [Concomitant]
  2. SPIRONOLACTONE [Concomitant]
  3. BOSENTAN [Concomitant]
  4. DIGOXIN [Concomitant]
  5. REVATIO [Suspect]
     Dosage: 50 MG, 3X/DAY
     Dates: start: 20111020, end: 20111101
  6. REVATIO [Suspect]
     Indication: PULMONARY ARTERIAL HYPERTENSION
     Dosage: 20 MG, 3X/DAY

REACTIONS (1)
  - HYPOMANIA [None]
